FAERS Safety Report 25040822 (Version 1)
Quarter: 2025Q1

REPORT INFORMATION
  Report Type: Spontaneous
  Country: CN (occurrence: CN)
  Receive Date: 20250305
  Receipt Date: 20250305
  Transmission Date: 20250408
  Serious: Yes (Other)
  Sender: Norvium Bioscience
  Company Number: CN-Norvium Bioscience LLC-079928

PATIENT
  Age: 64 Year
  Sex: Male
  Weight: 0 kg

DRUGS (2)
  1. CARBOPLATIN [Suspect]
     Active Substance: CARBOPLATIN
     Indication: Metastases to central nervous system
  2. PACLITAXEL [Suspect]
     Active Substance: PACLITAXEL
     Indication: Metastases to central nervous system

REACTIONS (3)
  - Nausea [Unknown]
  - Dysphagia [Unknown]
  - Vomiting [Unknown]
